FAERS Safety Report 6996459-6 (Version None)
Quarter: 2010Q3

REPORT INFORMATION
  Report Type: 
  Country: None (occurrence: None)
  Receive Date: 20100918
  Receipt Date: 20090317
  Transmission Date: 20110219
  Serious: Yes (Other)
  Sender: FDA-Public Use
  Company Number: US-WYE-H08626609

PATIENT
  Sex: Female

DRUGS (6)
  1. PREMPRO [Suspect]
  2. ESTRADERM [Suspect]
  3. MEDROXYPROGESTERONE [Suspect]
  4. CLIMARA [Suspect]
  5. PREMARIN [Suspect]
  6. PROVERA [Suspect]

REACTIONS (3)
  - ENDOMETRIAL CANCER [None]
  - HYPERTENSION [None]
  - INTESTINAL PROLAPSE [None]
